FAERS Safety Report 13084457 (Version 2)
Quarter: 2017Q1

REPORT INFORMATION
  Report Type: Spontaneous
  Country: US (occurrence: US)
  Receive Date: 20170104
  Receipt Date: 20170112
  Transmission Date: 20170428
  Serious: Yes (Death)
  Sender: FDA-Public Use
  Company Number: US-ASTRAZENECA-2016SF37747

PATIENT
  Age: 48 Year
  Sex: Female

DRUGS (12)
  1. ALPRAZOLAM. [Suspect]
     Active Substance: ALPRAZOLAM
  2. DULOXETINE. [Suspect]
     Active Substance: DULOXETINE
  3. POTASSIUM METAL [Suspect]
     Active Substance: POTASSIUM
  4. TEMAZEPAM. [Suspect]
     Active Substance: TEMAZEPAM
  5. NYSTATIN. [Suspect]
     Active Substance: NYSTATIN
  6. LEVETIRACETAM. [Suspect]
     Active Substance: LEVETIRACETAM
  7. MORPHINE [Suspect]
     Active Substance: MORPHINE
  8. LISINOPRIL. [Suspect]
     Active Substance: LISINOPRIL
     Route: 048
  9. OMEPRAZOLE. [Suspect]
     Active Substance: OMEPRAZOLE
     Route: 048
  10. NAPROXEN. [Suspect]
     Active Substance: NAPROXEN
  11. HYDROCHLOROTHIAZIDE. [Suspect]
     Active Substance: HYDROCHLOROTHIAZIDE
     Dosage: NON AZ PRODUCT
  12. CLONIDINE. [Suspect]
     Active Substance: CLONIDINE

REACTIONS (2)
  - Death [Fatal]
  - Toxicity to various agents [Fatal]
